FAERS Safety Report 23563532 (Version 2)
Quarter: 2024Q1

REPORT INFORMATION
  Report Type: Spontaneous
  Country: US (occurrence: US)
  Receive Date: 20240226
  Receipt Date: 20240301
  Transmission Date: 20240410
  Serious: Yes (Hospitalization, Other)
  Sender: FDA-Public Use
  Company Number: US-BRISTOL-MYERS SQUIBB COMPANY-2024-029068

PATIENT
  Age: 71 Year
  Sex: Female

DRUGS (1)
  1. LENALIDOMIDE [Suspect]
     Active Substance: LENALIDOMIDE
     Indication: Plasma cell myeloma in remission
     Dosage: TAKE 1 CAPSULE WHOLE BY MOUTH WITH WATER EVERY OTHER DAY. DO NOT BREAK, CHEW OR OPEN.
     Route: 048
     Dates: start: 20221115

REACTIONS (2)
  - Off label use [Unknown]
  - Pneumonia [Recovered/Resolved]
